FAERS Safety Report 7456156-X (Version None)
Quarter: 2011Q1

REPORT INFORMATION
  Report Type: 
  Country: None (occurrence: None)
  Receive Date: 20110302
  Receipt Date: 20110104
  Transmission Date: 20110831
  Serious: No
  Sender: FDA-Public Use
  Company Number: 024892

PATIENT
  Sex: Female
  Weight: 90.7 kg

DRUGS (7)
  1. HYDROCHLOROTHIAZIDE [Concomitant]
  2. VITAMIN D [Concomitant]
  3. CIMZIA [Suspect]
     Indication: CROHN'S DISEASE
     Dosage: 400 MG 1X/2 WEEKS SUBCUTANEOUS
     Route: 058
     Dates: start: 20101221
  4. ZYRTEC [Concomitant]
  5. FERROUS SULFATE TAB [Concomitant]
  6. VITAMIN B-12 [Concomitant]
  7. C-VITAMIN [Concomitant]

REACTIONS (5)
  - COUGH [None]
  - ASTHENIA [None]
  - JARISCH-HERXHEIMER REACTION [None]
  - CHEST DISCOMFORT [None]
  - SWELLING [None]
